FAERS Safety Report 6076375-7 (Version None)
Quarter: 2009Q1

REPORT INFORMATION
  Report Type: 
  Country: None (occurrence: None)
  Receive Date: 20090211
  Receipt Date: 20090204
  Transmission Date: 20090719
  Serious: Yes (Death, Hospitalization)
  Sender: FDA-Public Use
  Company Number: 040836

PATIENT
  Age: 4 Month
  Sex: Female
  Weight: 5.6 kg

DRUGS (16)
  1. METHOTREXATE [Suspect]
     Indication: ACUTE LYMPHOCYTIC LEUKAEMIA
     Dosage: 7.5 MG, INTRATHECAL
     Route: 037
     Dates: start: 20081007, end: 20081022
  2. METHOTREXATE [Suspect]
     Indication: LYMPHOCYTIC LEUKAEMIA
     Dosage: 7.5 MG, INTRATHECAL
     Route: 037
     Dates: start: 20081007, end: 20081022
  3. NI ( ) [Suspect]
     Indication: ACUTE LYMPHOCYTIC LEUKAEMIA
  4. CYCLOPHOSPHAMIDE [Suspect]
     Indication: ACUTE LEUKAEMIA
     Dosage: 250 MG/M2, INTRAVENOUS
     Route: 042
     Dates: start: 20081007, end: 20081011
  5. DAUNORUBICIN HCL [Suspect]
     Indication: ACUTE LYMPHOCYTIC LEUKAEMIA
     Dosage: 1.7MG/KG OVER 30 MINS {36 MINS, INTRAVENOUS
     Route: 042
     Dates: start: 20081007, end: 20081008
  6. DAUNORUBICIN HCL [Suspect]
     Indication: LYMPHOCYTIC LEUKAEMIA
     Dosage: 1.7MG/KG OVER 30 MINS {36 MINS, INTRAVENOUS
     Route: 042
     Dates: start: 20081007, end: 20081008
  7. PEG-ASPARGINASE(PEGASPARGASE) [Suspect]
     Indication: ACUTE LYMPHOCYTIC LEUKAEMIA
     Dosage: 2500 IU, INTRAMUSCULAR
     Route: 030
     Dates: start: 20081007, end: 20081010
  8. PEG-ASPARGINASE(PEGASPARGASE) [Suspect]
     Indication: LYMPHOCYTIC LEUKAEMIA
     Dosage: 2500 IU, INTRAMUSCULAR
     Route: 030
     Dates: start: 20081007, end: 20081010
  9. PREDNISOLONE [Suspect]
     Indication: ACUTE LYMPHOCYTIC LEUKAEMIA
     Dosage: 40 MG/M2, TID
     Dates: start: 20081007, end: 20081010
  10. PREDNISOLONE [Suspect]
     Indication: LYMPHOCYTIC LEUKAEMIA
     Dosage: 40 MG/M2, TID
     Dates: start: 20081007, end: 20081010
  11. HYDROCORTISONE [Suspect]
     Indication: ACUTE LYMPHOCYTIC LEUKAEMIA
     Dosage: 7.5 MG, 7.5 MG, INTRATHECAL
     Route: 037
     Dates: start: 20081007, end: 20081022
  12. HYDROCORTISONE [Suspect]
     Indication: LYMPHOCYTIC LEUKAEMIA
     Dosage: 7.5 MG, 7.5 MG, INTRATHECAL
     Route: 037
     Dates: start: 20081007, end: 20081022
  13. CYTARABINE [Suspect]
     Indication: ACUTE LYMPHOCYTIC LEUKAEMIA
     Dosage: 15 MG, INTRATRACHEAL
     Route: 039
  14. CYTARABINE [Suspect]
     Indication: LYMPHOCYTIC LEUKAEMIA
     Dosage: 15 MG, INTRATRACHEAL
     Route: 039
  15. VINCRISTINE [Concomitant]
  16. MEROPENEM (MEROPENEM) [Concomitant]

REACTIONS (17)
  - ACIDOSIS [None]
  - ACUTE LYMPHOCYTIC LEUKAEMIA [None]
  - CANDIDIASIS [None]
  - CYTOMEGALOVIRUS INFECTION [None]
  - DISEASE PROGRESSION [None]
  - ENTEROBACTER INFECTION [None]
  - ENTEROCOCCAL INFECTION [None]
  - FUNGAL SEPSIS [None]
  - HEPATIC FUNCTION ABNORMAL [None]
  - HYPERBILIRUBINAEMIA [None]
  - HYPOTENSION [None]
  - HYPOXIA [None]
  - MUCOSAL INFLAMMATION [None]
  - MULTI-ORGAN FAILURE [None]
  - RENAL IMPAIRMENT [None]
  - RESPIRATORY DISTRESS [None]
  - STOMATITIS [None]
